FAERS Safety Report 22106010 (Version 2)
Quarter: 2023Q1

REPORT INFORMATION
  Report Type: Spontaneous
  Country: US (occurrence: US)
  Receive Date: 20230317
  Receipt Date: 20230317
  Transmission Date: 20230418
  Serious: Yes (Other)
  Sender: FDA-Public Use
  Company Number: US-SA-SAC20230310000523

PATIENT
  Age: 63 Year
  Sex: Female

DRUGS (3)
  1. AUBAGIO [Suspect]
     Active Substance: TERIFLUNOMIDE
     Indication: Neuritis
     Dosage: 14 MG, QD
     Route: 048
     Dates: start: 202005
  2. AUBAGIO [Suspect]
     Active Substance: TERIFLUNOMIDE
     Indication: Multiple sclerosis
  3. AUBAGIO [Suspect]
     Active Substance: TERIFLUNOMIDE
     Indication: Neuralgia

REACTIONS (2)
  - Multiple sclerosis relapse [Unknown]
  - Product use in unapproved indication [Unknown]

NARRATIVE: CASE EVENT DATE: 20200501
